FAERS Safety Report 9172964 (Version 1)
Quarter: 2013Q1

REPORT INFORMATION
  Report Type: Spontaneous
  Country: US (occurrence: US)
  Receive Date: 20130320
  Receipt Date: 20130320
  Transmission Date: 20140127
  Serious: No
  Sender: FDA-Public Use
  Company Number: US-009507513-1303USA009275

PATIENT
  Age: 63 Year
  Sex: Female

DRUGS (1)
  1. NASONEX [Suspect]

REACTIONS (2)
  - Nasal discomfort [Unknown]
  - Rhinalgia [Unknown]
